FAERS Safety Report 9297815 (Version 2)
Quarter: 2013Q2

REPORT INFORMATION
  Report Type: Spontaneous
  Country: US (occurrence: US)
  Receive Date: 20130520
  Receipt Date: 20130528
  Transmission Date: 20140414
  Serious: Yes (Other)
  Sender: FDA-Public Use
  Company Number: US-JNJFOC-20130406519

PATIENT
  Age: 89 Year
  Sex: Male
  Weight: 78.47 kg

DRUGS (2)
  1. ZYTIGA [Suspect]
     Indication: PROSTATE CANCER METASTATIC
     Dosage: 4 X 250 MG
     Route: 048
     Dates: start: 20130117, end: 20130410
  2. PREDNISONE [Concomitant]
     Indication: PROSTATE CANCER METASTATIC
     Route: 048
     Dates: start: 20130117, end: 20130410

REACTIONS (2)
  - Mobility decreased [Recovered/Resolved]
  - Local swelling [Recovered/Resolved]
